FAERS Safety Report 20727682 (Version 1)
Quarter: 2022Q2

REPORT INFORMATION
  Report Type: Spontaneous
  Country: US (occurrence: None)
  Receive Date: 20220419
  Receipt Date: 20220419
  Transmission Date: 20220721
  Serious: No
  Sender: FDA-Public Use
  Company Number: US-ROCHE-3003489

PATIENT
  Age: 56 Year
  Sex: Female

DRUGS (2)
  1. AVASTIN [Suspect]
     Active Substance: BEVACIZUMAB
     Indication: Product used for unknown indication
     Route: 065
  2. RUBRACA [Suspect]
     Active Substance: RUCAPARIB CAMSYLATE
     Indication: Ovarian cancer
     Dosage: FOR 2 WEEKS
     Route: 048
     Dates: start: 20211026

REACTIONS (9)
  - COVID-19 [Unknown]
  - Arthralgia [Unknown]
  - Protein urine present [Unknown]
  - Peripheral swelling [Unknown]
  - Headache [Unknown]
  - Erythema [Unknown]
  - Nausea [Unknown]
  - Product dose omission issue [Unknown]
  - Feeling hot [Unknown]

NARRATIVE: CASE EVENT DATE: 20211030
